FAERS Safety Report 8333509-9 (Version None)
Quarter: 2012Q2

REPORT INFORMATION
  Report Type: 
  Country: None (occurrence: None)
  Receive Date: 20120503
  Receipt Date: 20101109
  Transmission Date: 20120825
  Serious: No
  Sender: FDA-Public Use
  Company Number: US-TEVA-2010005843

PATIENT
  Sex: Male
  Weight: 108.05 kg

DRUGS (11)
  1. NUVIGIL [Suspect]
     Indication: SLEEP APNOEA SYNDROME
     Dosage: 150 MILLIGRAM;
     Route: 048
     Dates: start: 20091101, end: 20091101
  2. PRECOSE [Concomitant]
     Dates: start: 20050101
  3. BUSPIRONE HCL [Concomitant]
  4. TESTIM [Concomitant]
  5. MICARDIS [Concomitant]
     Dates: start: 20080101
  6. EFFEXOR [Concomitant]
  7. FLOMAX [Concomitant]
     Dates: start: 20080101
  8. CLONAZEPAM [Concomitant]
  9. CRESTOR [Concomitant]
     Dates: start: 20091101
  10. NUVIGIL [Suspect]
     Dosage: 250 MILLIGRAM;
     Route: 048
     Dates: start: 20091101, end: 20091201
  11. METFORMIN HCL [Concomitant]
     Dates: start: 20040101

REACTIONS (1)
  - DRUG INEFFECTIVE [None]
